FAERS Safety Report 4484926-9 (Version None)
Quarter: 2004Q3

REPORT INFORMATION
  Report Type: 
  Country: None (occurrence: None)
  Receive Date: 20040921
  Receipt Date: 20030729
  Transmission Date: 20050211
  Serious: Yes (Hospitalization)
  Sender: FDA-Public Use
  Company Number: 163-20785-03080069 (0)

PATIENT
  Age: 67 Year
  Sex: Female

DRUGS (2)
  1. THALOMID [Suspect]
     Indication: MULTIPLE MYELOMA
     Dosage: 50 MG, DAILY, ORAL
     Route: 048
     Dates: start: 19990610, end: 20030421
  2. INTERFERON (INTERFERON ALFA) [Suspect]
     Dosage: 3 MILLION UNITS, TIW, SUBCUTANEOUS
     Route: 058
     Dates: start: 20030227, end: 20030421

REACTIONS (2)
  - ANAEMIA [None]
  - PNEUMONIA [None]
